FAERS Safety Report 20151400 (Version 2)
Quarter: 2022Q1

REPORT INFORMATION
  Report Type: Report from Study
  Country: US (occurrence: US)
  Receive Date: 20211206
  Receipt Date: 20220124
  Transmission Date: 20220423
  Serious: Yes (Hospitalization)
  Sender: FDA-Public Use
  Company Number: US-TAKEDA-2021TUS041737

PATIENT
  Age: 51 Year
  Sex: Female

DRUGS (10)
  1. TEDUGLUTIDE [Suspect]
     Active Substance: TEDUGLUTIDE
     Indication: Short-bowel syndrome
     Dosage: 2.8 MILLIGRAM (0.05MG/KG), 4/WEEK
     Route: 065
     Dates: start: 20130401, end: 201808
  2. TEDUGLUTIDE [Suspect]
     Active Substance: TEDUGLUTIDE
     Indication: Short-bowel syndrome
     Dosage: 2.8 MILLIGRAM (0.05MG/KG), 4/WEEK
     Route: 065
     Dates: start: 20130401, end: 201808
  3. TEDUGLUTIDE [Suspect]
     Active Substance: TEDUGLUTIDE
     Indication: Short-bowel syndrome
     Dosage: 2.8 MILLIGRAM (0.05MG/KG), 4/WEEK
     Route: 065
     Dates: start: 20130401, end: 201808
  4. TEDUGLUTIDE [Suspect]
     Active Substance: TEDUGLUTIDE
     Indication: Short-bowel syndrome
     Dosage: 2.8 MILLIGRAM (0.05MG/KG), 4/WEEK
     Route: 065
     Dates: start: 20130401, end: 201808
  5. METRONIDAZOLE [Concomitant]
     Active Substance: METRONIDAZOLE
     Indication: Diarrhoea
     Dosage: 500 MILLIGRAM, Q12H
     Route: 048
     Dates: start: 20200514, end: 20200523
  6. CIPRO [Concomitant]
     Active Substance: CIPROFLOXACIN HYDROCHLORIDE
     Indication: Diarrhoea
     Dosage: 500 MILLIGRAM, Q12H
     Route: 048
     Dates: start: 20200514, end: 20200523
  7. MAGNESIUM OXIDE [Concomitant]
     Active Substance: MAGNESIUM OXIDE
     Indication: Hypomagnesaemia
     Dosage: 400 MILLIGRAM, QD
     Route: 048
     Dates: start: 20190325, end: 20190401
  8. CLINDAMYCIN [Concomitant]
     Active Substance: CLINDAMYCIN
     Indication: Device related infection
     Dosage: 300 MILLIGRAM, QID
     Route: 048
     Dates: start: 20180724, end: 201808
  9. OMEPRAZOLE [Concomitant]
     Active Substance: OMEPRAZOLE
     Indication: Gastrooesophageal reflux disease
     Dosage: UNK MILLIGRAM, BID
     Route: 048
     Dates: start: 202005
  10. CEFTRIAXONE [Concomitant]
     Active Substance: CEFTRIAXONE
     Indication: Bacteraemia
     Dosage: UNK UNK, BID
     Route: 048
     Dates: start: 20210714, end: 20210720

REACTIONS (3)
  - Metabolic acidosis [Recovered/Resolved]
  - Gastrooesophageal reflux disease [Not Recovered/Not Resolved]
  - Abdominal distension [Not Recovered/Not Resolved]

NARRATIVE: CASE EVENT DATE: 20200401
